FAERS Safety Report 5512297-5 (Version None)
Quarter: 2007Q4

REPORT INFORMATION
  Report Type: 
  Country: None (occurrence: None)
  Receive Date: 20071112
  Receipt Date: 20071102
  Transmission Date: 20080405
  Serious: No
  Sender: FDA-Public Use
  Company Number: A0683888A

PATIENT

DRUGS (1)
  1. VERAMYST [Suspect]
     Indication: CHRONIC SINUSITIS
     Route: 045

REACTIONS (3)
  - ACCIDENTAL OVERDOSE [None]
  - PHARMACEUTICAL PRODUCT COMPLAINT [None]
  - UNDERDOSE [None]
